FAERS Safety Report 24127211 (Version 2)
Quarter: 2024Q3

REPORT INFORMATION
  Report Type: Spontaneous
  Country: US (occurrence: US)
  Receive Date: 20240723
  Receipt Date: 20240828
  Transmission Date: 20241017
  Serious: Yes (Other)
  Sender: BRISTOL MYERS SQUIBB
  Company Number: US-BRISTOL-MYERS SQUIBB COMPANY-2024-115070

PATIENT
  Age: 41 Year
  Sex: Female

DRUGS (2)
  1. REVLIMID [Suspect]
     Active Substance: LENALIDOMIDE
     Indication: Plasma cell myeloma
     Route: 048
  2. REVLIMID [Suspect]
     Active Substance: LENALIDOMIDE
     Dosage: QD FOR 14 DAYS THEN 7 DAYS OFF
     Route: 048

REACTIONS (6)
  - Haematochezia [Unknown]
  - Weight abnormal [Unknown]
  - Migraine [Unknown]
  - Decreased appetite [Unknown]
  - Pyrexia [Unknown]
  - Off label use [Unknown]
